FAERS Safety Report 5924910-9 (Version None)
Quarter: 2008Q4

REPORT INFORMATION
  Report Type: 
  Country: None (occurrence: None)
  Receive Date: 20081021
  Receipt Date: 20050823
  Transmission Date: 20090506
  Serious: Yes (Hospitalization, Other)
  Sender: FDA-Public Use
  Company Number: GB-JNJFOC-20050805678

PATIENT
  Age: 79 Year
  Sex: Female

DRUGS (14)
  1. TRAMADOL HCL [Suspect]
     Indication: POSTOPERATIVE ANALGESIA
     Dosage: 50-100MG
     Route: 065
  2. ACETAMINOPHEN [Concomitant]
     Dosage: UNKNOWN
  3. INDAPAMIDE [Concomitant]
  4. ATENOLOL [Concomitant]
     Indication: HYPERTENSION
  5. VALSARTAN [Concomitant]
     Indication: HYPERTENSION
  6. TIAPROFENIC ACID [Concomitant]
     Indication: ANALGESIA
  7. ONDANSETRON [Concomitant]
     Indication: VOMITING
  8. ONDANSETRON [Concomitant]
     Indication: NAUSEA
  9. BUPIVACAINE [Concomitant]
  10. CYCLIZINE [Concomitant]
  11. DEXAMETHASONE [Concomitant]
  12. PROPOFOL [Concomitant]
  13. DIAMORPHINE [Concomitant]
  14. FENTANYL CITRATE [Concomitant]

REACTIONS (5)
  - ABDOMINAL PAIN [None]
  - CHEST PAIN [None]
  - FEELING ABNORMAL [None]
  - GRAND MAL CONVULSION [None]
  - HYPONATRAEMIA [None]
